FAERS Safety Report 7942794-4 (Version None)
Quarter: 2011Q4

REPORT INFORMATION
  Report Type: 
  Country: None (occurrence: None)
  Receive Date: 20111128
  Receipt Date: 20111021
  Transmission Date: 20120403
  Serious: No
  Sender: FDA-Public Use
  Company Number: US-BAYER-2011-104065

PATIENT

DRUGS (1)
  1. ALEVE (CAPLET) [Suspect]

REACTIONS (3)
  - PAIN [None]
  - PAIN IN EXTREMITY [None]
  - BACK PAIN [None]
